FAERS Safety Report 4865798-7 (Version None)
Quarter: 2005Q4

REPORT INFORMATION
  Report Type: 
  Country: None (occurrence: None)
  Receive Date: 20051220
  Receipt Date: 20051206
  Transmission Date: 20060501
  Serious: Yes (Death)
  Sender: FDA-Public Use
  Company Number: 2005-135279-NL

PATIENT
  Age: 36 Year
  Sex: Female

DRUGS (3)
  1. DESOGESTREL AND ETHINYL ESTRADIOL [Suspect]
     Dosage: DF ORAL
     Route: 048
  2. OLANZAPINE [Concomitant]
  3. VALERIAN EXTRACT [Concomitant]

REACTIONS (20)
  - ASTHENIA [None]
  - BLOOD CREATINE PHOSPHOKINASE MB INCREASED [None]
  - BLOOD LACTIC ACID INCREASED [None]
  - BLOOD PRESSURE SYSTOLIC DECREASED [None]
  - BODY TEMPERATURE DECREASED [None]
  - BRAIN SCAN ABNORMAL [None]
  - CARDIAC ARREST [None]
  - CEREBRAL ARTERY EMBOLISM [None]
  - CYANOSIS [None]
  - ELECTROCARDIOGRAM P WAVE ABNORMAL [None]
  - ELECTROCARDIOGRAM QT CORRECTED INTERVAL PROLONGED [None]
  - ELECTROCARDIOGRAM T WAVE INVERSION [None]
  - EMBOLISM [None]
  - HEART RATE DECREASED [None]
  - LEUKOCYTOSIS [None]
  - MALAISE [None]
  - PCO2 DECREASED [None]
  - PUPIL FIXED [None]
  - RESPIRATORY ARREST [None]
  - TROPONIN I INCREASED [None]
